FAERS Safety Report 15291866 (Version 1)
Quarter: 2018Q3

REPORT INFORMATION
  Report Type: Spontaneous
  Country: JP (occurrence: JP)
  Receive Date: 20180817
  Receipt Date: 20180817
  Transmission Date: 20181010
  Serious: Yes (Other)
  Sender: FDA-Public Use
  Company Number: JP-GILEAD-2018-0348005

PATIENT
  Age: 55 Year
  Sex: Male

DRUGS (4)
  1. VEMLIDY [Suspect]
     Active Substance: TENOFOVIR ALAFENAMIDE FUMARATE
     Indication: HEPATIC CIRRHOSIS
  2. FLUNITRAZEPAM AMEL [Concomitant]
     Dosage: 1T/DAY, UNK
  3. VEMLIDY [Suspect]
     Active Substance: TENOFOVIR ALAFENAMIDE FUMARATE
     Indication: HEPATITIS B
     Dosage: 1 DF, UNK
     Route: 048
  4. SENNA                              /00571901/ [Concomitant]
     Active Substance: SENNOSIDES A AND B
     Dosage: AS NEEDED

REACTIONS (1)
  - Platelet count decreased [Not Recovered/Not Resolved]
